FAERS Safety Report 8504306-6 (Version None)
Quarter: 2012Q3

REPORT INFORMATION
  Report Type: 
  Country: None (occurrence: None)
  Receive Date: 20120711
  Receipt Date: 20120629
  Transmission Date: 20120928
  Serious: No
  Sender: FDA-Public Use
  Company Number: US-ASTRAZENECA-2012SE44853

PATIENT
  Age: 70 Year
  Sex: Female
  Weight: 68 kg

DRUGS (4)
  1. ZESTORETIC [Suspect]
     Dosage: 10/12.5 MG ONCE A DAY
     Route: 048
  2. ASPIRIN [Suspect]
     Dosage: 81 MG, ONCE OR TWICE A WEEK
     Route: 065
  3. ASPIRIN [Suspect]
     Route: 065
  4. ZESTORETIC [Suspect]
     Indication: BLOOD PRESSURE ABNORMAL
     Route: 048

REACTIONS (3)
  - CONTUSION [None]
  - VOMITING [None]
  - GASTRIC DISORDER [None]
